FAERS Safety Report 9781631 (Version 1)
Quarter: 2013Q4

REPORT INFORMATION
  Report Type: Spontaneous
  Country: US (occurrence: US)
  Receive Date: 20131224
  Receipt Date: 20131224
  Transmission Date: 20140711
  Serious: No
  Sender: FDA-Public Use
  Company Number: US-009507513-1312USA009579

PATIENT
  Age: 67 Year
  Sex: Female

DRUGS (3)
  1. PRINIVIL [Suspect]
     Dosage: UNK
     Route: 048
  2. METOPROLOL [Concomitant]
  3. HYDROCHLOROTHIAZIDE [Concomitant]

REACTIONS (1)
  - Anaphylactic reaction [Unknown]
